FAERS Safety Report 13174351 (Version 1)
Quarter: 2017Q1

REPORT INFORMATION
  Report Type: Spontaneous
  Country: UA (occurrence: UA)
  Receive Date: 20170201
  Receipt Date: 20170201
  Transmission Date: 20170428
  Serious: Yes (Hospitalization)
  Sender: FDA-Public Use
  Company Number: UA-PFIZER INC-2017036533

PATIENT
  Age: 57 Year
  Sex: Female

DRUGS (6)
  1. ATORVASTATIN [Concomitant]
     Active Substance: ATORVASTATIN
     Dosage: 20 MG, DAILY
  2. ACETYLSALICYLIC ACID [Concomitant]
     Active Substance: ASPIRIN
     Dosage: 100 MG, DAILY
  3. AMIODARONE HCL [Suspect]
     Active Substance: AMIODARONE HYDROCHLORIDE
     Dosage: 200 MG, DAILY
     Route: 065
  4. METHYLPREDNISOLONE. [Concomitant]
     Active Substance: METHYLPREDNISOLONE
     Dosage: 48 MG, DAILY
  5. BUDESONIDE. [Concomitant]
     Active Substance: BUDESONIDE
     Dosage: UNK, 2X/DAY
  6. OMEPRAZOLE. [Concomitant]
     Active Substance: OMEPRAZOLE
     Dosage: 20 MG, DAILY
     Route: 048

REACTIONS (22)
  - Oxygen saturation decreased [Unknown]
  - Dizziness [Unknown]
  - Tremor [Unknown]
  - Erythema [Unknown]
  - Dyspnoea at rest [Not Recovered/Not Resolved]
  - Body temperature increased [Recovered/Resolved]
  - Exophthalmos [Unknown]
  - Asthenia [Not Recovered/Not Resolved]
  - Burning sensation [Unknown]
  - Right ventricular failure [Recovering/Resolving]
  - Fatigue [Unknown]
  - Exercise tolerance decreased [Recovering/Resolving]
  - Hyperhidrosis [Unknown]
  - Alopecia [Unknown]
  - Chest pain [Recovered/Resolved]
  - Peripheral swelling [Unknown]
  - Cough [Recovering/Resolving]
  - Headache [Unknown]
  - Photosensitivity reaction [Recovering/Resolving]
  - Skin hyperpigmentation [Unknown]
  - Pulmonary toxicity [Unknown]
  - Thyroid disorder [Recovering/Resolving]

NARRATIVE: CASE EVENT DATE: 2013
